FAERS Safety Report 4922749-4 (Version None)
Quarter: 2006Q1

REPORT INFORMATION
  Report Type: 
  Country: None (occurrence: None)
  Receive Date: 20060224
  Receipt Date: 20041201
  Transmission Date: 20060701
  Serious: Yes (Hospitalization)
  Sender: FDA-Public Use
  Company Number: US-MERCK-0412USA00302

PATIENT
  Age: 65 Year
  Sex: Male
  Weight: 80 kg

DRUGS (2)
  1. VIOXX [Suspect]
     Indication: BACK PAIN
     Route: 048
     Dates: start: 20020101, end: 20040901
  2. ALEVE [Concomitant]
     Route: 048

REACTIONS (5)
  - CHEST PAIN [None]
  - CORONARY ARTERY DISEASE [None]
  - DEAFNESS [None]
  - HYPERTENSION [None]
  - MYOCARDIAL INFARCTION [None]
